FAERS Safety Report 10004696 (Version 2)
Quarter: 2020Q4

REPORT INFORMATION
  Report Type: Spontaneous
  Country: PL (occurrence: PL)
  Receive Date: 20140312
  Receipt Date: 20201021
  Transmission Date: 20210113
  Serious: Yes (Other)
  Sender: FDA-Public Use
  Company Number: PHHY2014PL027596

PATIENT
  Age: 23 Year
  Sex: Male

DRUGS (5)
  1. CITALOPRAM [Interacting]
     Active Substance: CITALOPRAM HYDROBROMIDE
     Indication: PANIC ATTACK
     Dosage: 10 MG
     Route: 065
  2. CITALOPRAM [Interacting]
     Active Substance: CITALOPRAM HYDROBROMIDE
     Indication: SCHIZOPHRENIA
  3. SARCOSINE [Suspect]
     Active Substance: SARCOSINE
     Indication: PRODUCT USED FOR UNKNOWN INDICATION
     Dosage: UNK
     Route: 065
  4. QUETIAPINE. [Suspect]
     Active Substance: QUETIAPINE
     Indication: PRODUCT USED FOR UNKNOWN INDICATION
     Dosage: 500 MG
     Route: 065
  5. CITALOPRAM [Interacting]
     Active Substance: CITALOPRAM HYDROBROMIDE
     Indication: NEGATIVE THOUGHTS

REACTIONS (7)
  - Energy increased [Unknown]
  - Tension [Recovering/Resolving]
  - Irritability [Recovering/Resolving]
  - Libido increased [Unknown]
  - Abnormal behaviour [Recovering/Resolving]
  - Psychomotor hyperactivity [Recovering/Resolving]
  - Drug interaction [Unknown]
